FAERS Safety Report 16768638 (Version 1)
Quarter: 2019Q3

REPORT INFORMATION
  Report Type: Spontaneous
  Country: FR (occurrence: FR)
  Receive Date: 20190903
  Receipt Date: 20190903
  Transmission Date: 20191005
  Serious: Yes (Hospitalization)
  Sender: FDA-Public Use
  Company Number: FR-MYLANLABS-2019M1082112

PATIENT
  Age: 85 Year
  Sex: Female

DRUGS (8)
  1. BETAHISTINE                        /00141802/ [Concomitant]
     Active Substance: BETAHISTINE
  2. ISOPTINE [Concomitant]
     Active Substance: VERAPAMIL HYDROCHLORIDE
  3. TIAPRIDAL [Concomitant]
     Active Substance: TIAPRIDE HYDROCHLORIDE
  4. IMOVANE [Concomitant]
     Active Substance: ZOPICLONE
  5. PARACETAMOL [Concomitant]
     Active Substance: ACETAMINOPHEN
  6. SERESTA [Concomitant]
     Active Substance: OXAZEPAM
  7. RISPERIDONE. [Suspect]
     Active Substance: RISPERIDONE
     Indication: PRODUCT USED FOR UNKNOWN INDICATION
     Dosage: NON CONNUE
     Route: 048
  8. PREGABALINE [Concomitant]
     Active Substance: PREGABALIN

REACTIONS (1)
  - Epilepsy [Recovered/Resolved]

NARRATIVE: CASE EVENT DATE: 20190319
